FAERS Safety Report 4967437-3 (Version None)
Quarter: 2006Q2

REPORT INFORMATION
  Report Type: 
  Country: None (occurrence: None)
  Receive Date: 20060407
  Receipt Date: 20060407
  Transmission Date: 20061013
  Serious: Yes (Life-Threatening, Disabling, Other)
  Sender: FDA-Public Use
  Company Number: None

PATIENT
  Age: 40 Year
  Sex: Male
  Weight: 77.1115 kg

DRUGS (3)
  1. EPIVIR [Suspect]
     Indication: HIV INFECTION
     Dosage: 300    ONCE DAILY   PO
     Route: 048
     Dates: start: 20040101, end: 20060312
  2. VIREAD [Suspect]
     Indication: HIV INFECTION
     Dosage: 300     ONCE DAILY   PO
     Route: 048
     Dates: start: 20040101, end: 20060312
  3. SUSTIVA [Suspect]
     Dosage: PO
     Route: 048

REACTIONS (4)
  - ALANINE AMINOTRANSFERASE ABNORMAL [None]
  - ASPARTATE AMINOTRANSFERASE ABNORMAL [None]
  - HEPATOMEGALY [None]
  - PANCREATIC ATROPHY [None]
